FAERS Safety Report 14262870 (Version 3)
Quarter: 2018Q3

REPORT INFORMATION
  Report Type: Spontaneous
  Country: FI (occurrence: FI)
  Receive Date: 20171208
  Receipt Date: 20180702
  Transmission Date: 20181010
  Serious: Yes (Death, Other)
  Sender: FDA-Public Use
  Company Number: FI-ROCHE-2031460

PATIENT
  Age: 20 Year
  Sex: Female

DRUGS (7)
  1. FOSPHENYTOIN [Suspect]
     Active Substance: FOSPHENYTOIN
     Indication: SEIZURE
     Route: 065
  2. CLONAZEPAM. [Suspect]
     Active Substance: CLONAZEPAM
     Indication: SEIZURE
     Route: 065
  3. MIDAZOLAM [Suspect]
     Active Substance: MIDAZOLAM HYDROCHLORIDE
     Indication: SEIZURE
     Route: 065
  4. SODIUM VALPROATE [Suspect]
     Active Substance: VALPROATE SODIUM
     Indication: SEIZURE
     Route: 065
  5. TOPIRAMATE. [Suspect]
     Active Substance: TOPIRAMATE
     Indication: SEIZURE
     Route: 065
  6. THIOPENTONE [Suspect]
     Active Substance: THIOPENTAL SODIUM
     Indication: SEIZURE
     Route: 065
  7. GABAPENTIN. [Suspect]
     Active Substance: GABAPENTIN
     Indication: SEIZURE
     Route: 065

REACTIONS (11)
  - Somnolence [Unknown]
  - Bilirubin conjugated increased [Unknown]
  - Hepatic failure [Fatal]
  - Blood alkaline phosphatase increased [Unknown]
  - Drug resistance [Unknown]
  - Blood bilirubin increased [Unknown]
  - Blood lactic acid increased [Unknown]
  - International normalised ratio increased [Unknown]
  - Coma hepatic [Unknown]
  - Ammonia increased [Unknown]
  - Alanine aminotransferase increased [Unknown]
